FAERS Safety Report 7080896-8 (Version None)
Quarter: 2010Q4

REPORT INFORMATION
  Report Type: 
  Country: None (occurrence: None)
  Receive Date: 20101103
  Receipt Date: 20101025
  Transmission Date: 20110411
  Serious: Yes (Other)
  Sender: FDA-Public Use
  Company Number: US-ASTRAZENECA-2010SE50545

PATIENT
  Age: 83 Year
  Sex: Female

DRUGS (1)
  1. ARIMIDEX [Suspect]
     Route: 048
     Dates: start: 20081101, end: 20100101

REACTIONS (3)
  - BODY HEIGHT DECREASED [None]
  - BONE NEOPLASM MALIGNANT [None]
  - DRUG INEFFECTIVE [None]
